FAERS Safety Report 24194307 (Version 1)
Quarter: 2024Q3

REPORT INFORMATION
  Report Type: Report from Study
  Country: US (occurrence: US)
  Receive Date: 20240809
  Receipt Date: 20240809
  Transmission Date: 20241017
  Serious: Yes (Hospitalization)
  Sender: GILEAD
  Company Number: US-GILEAD-2024-0680033

PATIENT
  Sex: Male

DRUGS (4)
  1. AZTREONAM LYSINE [Suspect]
     Active Substance: AZTREONAM LYSINE
     Indication: Cystic fibrosis
     Dosage: 1 VIAL VIA ALTERA NEBULIZER THREE TIMES DAILY CYCLING 28 DAYS ON 28 DAYS OFF (ALTERNATE WITH INHALED
     Route: 055
  2. AZTREONAM LYSINE [Suspect]
     Active Substance: AZTREONAM LYSINE
     Dosage: 75 MG, TID (INHALE 75 MG 3 TIMES DAILY CYCLING 28 DAYS ON 28 DAYS OFF)
     Route: 055
  3. PULMOZYME [Concomitant]
     Active Substance: DORNASE ALFA
  4. BETHKIS [Concomitant]
     Active Substance: TOBRAMYCIN

REACTIONS (3)
  - Chest discomfort [Unknown]
  - Dyspnoea [Unknown]
  - Illness [Unknown]
